FAERS Safety Report 7926220-7 (Version None)
Quarter: 2011Q4

REPORT INFORMATION
  Report Type: 
  Country: None (occurrence: None)
  Receive Date: 20111118
  Receipt Date: 20111110
  Transmission Date: 20120403
  Serious: Yes (Hospitalization)
  Sender: FDA-Public Use
  Company Number: US-BIOGENIDEC-2011BI002464

PATIENT
  Age: 35 Year
  Sex: Female
  Weight: 119 kg

DRUGS (14)
  1. PROPRANOLOL [Concomitant]
     Indication: HYPERTENSION
  2. MULTI-VITAMIN [Concomitant]
     Route: 048
  3. RANITIDINE [Concomitant]
     Route: 048
  4. ALBUTEROL [Concomitant]
  5. FISH OIL [Concomitant]
     Route: 048
  6. NORTRIPTYLINE HCL [Concomitant]
     Route: 048
  7. CALCIUM [Concomitant]
     Indication: MULTIPLE SCLEROSIS
     Route: 048
  8. VITAMIN D [Concomitant]
     Indication: MULTIPLE SCLEROSIS
     Route: 048
  9. TYSABRI [Suspect]
     Indication: MULTIPLE SCLEROSIS
     Route: 042
     Dates: start: 20091009, end: 20101201
  10. NAPROXEN [Concomitant]
     Indication: PAIN
     Route: 048
  11. ASPIRIN [Concomitant]
     Route: 048
  12. IMITREX [Concomitant]
     Indication: MIGRAINE
     Route: 048
  13. IMITREX [Concomitant]
     Route: 048
  14. TYSABRI [Suspect]
     Route: 042
     Dates: start: 20110613

REACTIONS (1)
  - INTERSTITIAL LUNG DISEASE [None]
